FAERS Safety Report 4519974-3 (Version None)
Quarter: 2004Q4

REPORT INFORMATION
  Report Type: 
  Country: None (occurrence: None)
  Receive Date: 20041207
  Receipt Date: 20030605
  Transmission Date: 20050328
  Serious: Yes (Hospitalization)
  Sender: FDA-Public Use
  Company Number: US-MERCK-0306USA00875

PATIENT
  Age: 42 Year
  Sex: Female
  Weight: 98 kg

DRUGS (16)
  1. VIOXX [Suspect]
     Indication: ARTHRALGIA
     Route: 048
     Dates: start: 20010108
  2. ZOLOFT [Concomitant]
     Route: 048
     Dates: start: 20001027
  3. DEPAKOTE [Concomitant]
     Route: 048
     Dates: start: 20011027
  4. DEPAKOTE [Concomitant]
     Route: 048
     Dates: start: 20011027
  5. DEPAKOTE [Concomitant]
     Route: 048
     Dates: start: 20011027
  6. HUMIBID DM [Concomitant]
     Route: 048
     Dates: start: 20010108
  7. SEPTRA DS [Concomitant]
     Route: 048
     Dates: start: 20010108
  8. PHENERGAN TABLETS/SUPPOSITORIES [Concomitant]
     Route: 048
     Dates: start: 20000508
  9. NYSTATIN [Concomitant]
     Route: 061
     Dates: start: 20010108
  10. CLONIDINE HYDROCHLORIDE [Concomitant]
     Route: 048
     Dates: start: 20001027
  11. TAGAMET [Concomitant]
     Route: 048
     Dates: start: 20000508
  12. BENZTROPINE MESYLATE [Concomitant]
     Route: 048
     Dates: start: 20000508
  13. HALDOL [Concomitant]
     Route: 048
     Dates: start: 20001027
  14. AMBIEN [Concomitant]
     Route: 048
     Dates: start: 20001027
  15. LASIX [Concomitant]
     Route: 048
     Dates: start: 20000508
  16. COLACE [Concomitant]
     Route: 048
     Dates: start: 20010111

REACTIONS (16)
  - ABDOMINAL PAIN [None]
  - ANAEMIA [None]
  - ASTHMA [None]
  - BRONCHITIS ACUTE [None]
  - CHEST PAIN [None]
  - CONSTIPATION [None]
  - DYSPHAGIA [None]
  - DYSTONIA [None]
  - GASTROOESOPHAGEAL REFLUX DISEASE [None]
  - HAND FRACTURE [None]
  - HIATUS HERNIA [None]
  - OESOPHAGITIS [None]
  - POLYTRAUMATISM [None]
  - RHINITIS ALLERGIC [None]
  - UPPER RESPIRATORY TRACT INFECTION [None]
  - WEIGHT DECREASED [None]
